FAERS Safety Report 8465840-0 (Version None)
Quarter: 2012Q2

REPORT INFORMATION
  Report Type: 
  Country: None (occurrence: None)
  Receive Date: 20120626
  Receipt Date: 20120611
  Transmission Date: 20120825
  Serious: Yes (Hospitalization)
  Sender: FDA-Public Use
  Company Number: US-ASTRAZENECA-2011SE14067

PATIENT
  Age: 870 Month
  Sex: Male

DRUGS (1)
  1. SYMBICORT [Suspect]
     Route: 055
     Dates: start: 20050101

REACTIONS (7)
  - WOUND INFECTION [None]
  - SUFFOCATION FEELING [None]
  - DRUG DOSE OMISSION [None]
  - DEAFNESS [None]
  - VERTIGO [None]
  - RESPIRATORY RATE INCREASED [None]
  - DYSPNOEA [None]
